FAERS Safety Report 23832426 (Version 3)
Quarter: 2024Q4

REPORT INFORMATION
  Report Type: Spontaneous
  Country: US (occurrence: US)
  Receive Date: 20240508
  Receipt Date: 20241017
  Transmission Date: 20250114
  Serious: Yes (Hospitalization)
  Sender: SANOFI AVENTIS
  Company Number: US-SA-2024SA131599

PATIENT
  Age: 8 Year
  Sex: Male

DRUGS (1)
  1. DUPIXENT [Suspect]
     Active Substance: DUPILUMAB
     Indication: Dermatitis atopic
     Dosage: 300 MG, Q4W
     Route: 058
     Dates: start: 202312

REACTIONS (4)
  - Nasopharyngitis [Unknown]
  - Streptococcal infection [Unknown]
  - Ligament sprain [Unknown]
  - Limb injury [Unknown]

NARRATIVE: CASE EVENT DATE: 20240301
